FAERS Safety Report 9271700 (Version 3)
Quarter: 2013Q2

REPORT INFORMATION
  Report Type: Spontaneous
  Country: US (occurrence: US)
  Receive Date: 20130506
  Receipt Date: 20130619
  Transmission Date: 20140414
  Serious: No
  Sender: FDA-Public Use
  Company Number: US-PFIZER INC-2013134860

PATIENT
  Age: 81 Year
  Sex: Female

DRUGS (2)
  1. LEVOTHYROXINE SODIUM [Suspect]
     Dosage: 75 UG, 1X/DAY
  2. SYNTHROID [Suspect]
     Dosage: UNK

REACTIONS (1)
  - Nightmare [Unknown]
